FAERS Safety Report 12863032 (Version 1)
Quarter: 2016Q4

REPORT INFORMATION
  Report Type: Report from Study
  Country: BR (occurrence: BR)
  Receive Date: 20161019
  Receipt Date: 20161019
  Transmission Date: 20170207
  Serious: Yes (Hospitalization, Other)
  Sender: FDA-Public Use
  Company Number: PHHY2016BR142061

PATIENT
  Age: 84 Year
  Sex: Female
  Weight: 78 kg

DRUGS (3)
  1. FEMARA [Suspect]
     Active Substance: LETROZOLE
     Indication: BREAST CANCER
     Dosage: 2.5 MG, QD
     Route: 048
     Dates: start: 2004
  2. FEMARA [Suspect]
     Active Substance: LETROZOLE
     Dosage: 2.5 MG, QD (1 CAPSULE PER DAY)
     Route: 048
  3. GAMMA GLOBULIN [Concomitant]
     Active Substance: IMMUNE GLOBULIN NOS
     Indication: NEUROPATHY PERIPHERAL
     Dosage: UNK, ONCE/SINGLE
     Route: 065

REACTIONS (10)
  - Asthenia [Unknown]
  - Fall [Unknown]
  - Neuropathy peripheral [Unknown]
  - Pain in extremity [Unknown]
  - Cervical vertebral fracture [Unknown]
  - Malaise [Unknown]
  - Femur fracture [Unknown]
  - Breast cancer recurrent [Unknown]
  - Syncope [Unknown]
  - Stress [Unknown]

NARRATIVE: CASE EVENT DATE: 2008
